FAERS Safety Report 7570485-0 (Version None)
Quarter: 2011Q2

REPORT INFORMATION
  Report Type: 
  Country: None (occurrence: None)
  Receive Date: 20110624
  Receipt Date: 20110615
  Transmission Date: 20111010
  Serious: Yes (Other)
  Sender: FDA-Public Use
  Company Number: CH-SANOFI-AVENTIS-2011SA038122

PATIENT
  Age: 70 Year
  Sex: Male

DRUGS (9)
  1. DIOVAN HCT [Concomitant]
     Route: 048
  2. MULTAQ [Interacting]
     Indication: ATRIAL FLUTTER
     Route: 048
     Dates: start: 20101221, end: 20110524
  3. SIMVASTATIN [Interacting]
     Route: 048
  4. SYMMETREL [Concomitant]
     Route: 048
  5. ANTICHOLINERGICS [Interacting]
     Route: 048
     Dates: start: 20110404
  6. ALLOPURINOL [Concomitant]
     Route: 048
  7. MULTAQ [Suspect]
     Indication: ATRIAL FIBRILLATION
     Route: 048
     Dates: start: 20101221, end: 20110524
  8. ASPIRIN [Concomitant]
     Route: 048
  9. AMILORIDE HCL AND HYDROCHLOROTHIAZIDE [Concomitant]
     Route: 048

REACTIONS (7)
  - BLOOD ALKALINE PHOSPHATASE INCREASED [None]
  - GAMMA-GLUTAMYLTRANSFERASE INCREASED [None]
  - MYALGIA [None]
  - ASPARTATE AMINOTRANSFERASE INCREASED [None]
  - ALANINE AMINOTRANSFERASE INCREASED [None]
  - HEPATIC ENZYME INCREASED [None]
  - DRUG INTERACTION [None]
